FAERS Safety Report 17605634 (Version 1)
Quarter: 2020Q1

REPORT INFORMATION
  Report Type: Spontaneous
  Country: US (occurrence: US)
  Receive Date: 20200331
  Receipt Date: 20200331
  Transmission Date: 20200409
  Serious: Yes (Other)
  Sender: FDA-Public Use
  Company Number: US-HORMOSAN PHARMA GMBH-2020-01508

PATIENT
  Age: 61 Year
  Sex: Female

DRUGS (1)
  1. OXYCODONE HYDROCHLORIDE TABLETS USP, 15 MG [Suspect]
     Active Substance: OXYCODONE HYDROCHLORIDE
     Indication: BACK PAIN
     Dosage: UNK UNK, TID
     Route: 048
     Dates: start: 20200319, end: 20200322

REACTIONS (3)
  - Product quality issue [Unknown]
  - Product substitution issue [Unknown]
  - Arrhythmia [Recovered/Resolved]

NARRATIVE: CASE EVENT DATE: 20200319
